FAERS Safety Report 8308613-1 (Version None)
Quarter: 2012Q2

REPORT INFORMATION
  Report Type: 
  Country: None (occurrence: None)
  Receive Date: 20120424
  Receipt Date: 20091111
  Transmission Date: 20120825
  Serious: Yes (Hospitalization)
  Sender: FDA-Public Use
  Company Number: IT-ROCHE-668340

PATIENT
  Sex: Female
  Weight: 60 kg

DRUGS (22)
  1. DOXORUBICIN HCL [Suspect]
     Indication: DIFFUSE LARGE B-CELL LYMPHOMA
     Dosage: LAST DOSE PRIOR TO SAE: 28-10-9
     Route: 042
     Dates: start: 20090723, end: 20091111
  2. ALLOPURINOL [Concomitant]
  3. PURSENNID [Concomitant]
  4. PREDNISOLONE [Suspect]
     Indication: DIFFUSE LARGE B-CELL LYMPHOMA
     Dosage: FORM: PILL, LAST DOSE PRIOR TO SAE: 01-11-09
     Route: 048
     Dates: start: 20090724, end: 20091111
  5. METOCLOPRAMIDE [Concomitant]
     Dosage: NAME RPTD AS ^METOCLOPRAMIDE CLORIDATO^
  6. SELG [Concomitant]
  7. LACTULOSA [Concomitant]
  8. MABTHERA [Suspect]
     Indication: DIFFUSE LARGE B-CELL LYMPHOMA
     Dosage: LAST DOSE PRIOR TO SAE: 28-10-09
     Route: 042
     Dates: start: 20090723, end: 20091111
  9. VINCRISTINE [Suspect]
     Indication: DIFFUSE LARGE B-CELL LYMPHOMA
     Dosage: LAST DOSE PRIOR TO SAE: 12-08-09
     Route: 042
     Dates: start: 20090723, end: 20091111
  10. OMEPRAZOLE [Concomitant]
  11. LORAZEPAM [Concomitant]
  12. SERTRALINA [Concomitant]
  13. FENTANYL-100 [Concomitant]
  14. AVASTIN [Suspect]
     Indication: DIFFUSE LARGE B-CELL LYMPHOMA
     Dosage: DOSE BLINDED,LAST DOSE PRIOR TO SAE: 28-10-09
     Route: 042
     Dates: start: 20090722, end: 20091111
  15. UNKNOWN MEDICATION [Concomitant]
     Dosage: TDD: 5000U
  16. COTRIM [Concomitant]
  17. ACYCLOVIR [Concomitant]
  18. CYCLOPHOSPHAMIDE [Suspect]
     Indication: DIFFUSE LARGE B-CELL LYMPHOMA
     Dosage: LAST DOSE PRIOR TO SAE: 28-10-09
     Route: 042
     Dates: start: 20090723, end: 20091111
  19. PREDNISONE TAB [Suspect]
     Indication: DIFFUSE LARGE B-CELL LYMPHOMA
     Dosage: LAST DOSE PRIOR TO SAE: 28-10-09
     Route: 042
     Dates: start: 20090723, end: 20091111
  20. CLORFENAMINA [Concomitant]
  21. ACETAMINOPHEN [Concomitant]
  22. ADEMETIONINA [Concomitant]

REACTIONS (1)
  - BONE MARROW FAILURE [None]
